FAERS Safety Report 21449259 (Version 2)
Quarter: 2022Q4

REPORT INFORMATION
  Report Type: Spontaneous
  Country: CA (occurrence: CA)
  Receive Date: 20221013
  Receipt Date: 20221109
  Transmission Date: 20230112
  Serious: Yes (Other)
  Sender: FDA-Public Use
  Company Number: CA-BAYER-2022A138719

PATIENT
  Sex: Female

DRUGS (50)
  1. EYLEA [Suspect]
     Active Substance: AFLIBERCEPT
     Indication: Diabetic retinal oedema
     Dosage: 2.0 MG; SOLUTION FOR INJECTION; STRENGTH: 40 MG/ML
     Route: 031
     Dates: start: 20180411, end: 20180411
  2. EYLEA [Suspect]
     Active Substance: AFLIBERCEPT
     Dosage: 2.0 MG (LEFT EYE); SOLUTION FOR INJECTION
     Route: 031
     Dates: start: 20180509, end: 20180509
  3. EYLEA [Suspect]
     Active Substance: AFLIBERCEPT
     Dosage: 2.0 MG (LEFT EYE); SOLUTION FOR INJECTION
     Route: 031
     Dates: start: 20180606, end: 20180606
  4. EYLEA [Suspect]
     Active Substance: AFLIBERCEPT
     Dosage: 2.0 MG (LEFT EYE); SOLUTION FOR INJECTION
     Route: 031
     Dates: start: 20180628, end: 20180628
  5. EYLEA [Suspect]
     Active Substance: AFLIBERCEPT
     Dosage: 2.0 MG (LEFT EYE); SOLUTION FOR INJECTION
     Route: 031
     Dates: start: 20180726, end: 20180726
  6. EYLEA [Suspect]
     Active Substance: AFLIBERCEPT
     Dosage: 2.0 MG (LEFT EYE); SOLUTION FOR INJECTION
     Route: 031
     Dates: start: 20180822, end: 20180822
  7. EYLEA [Suspect]
     Active Substance: AFLIBERCEPT
     Dosage: 2.0 MG (LEFT EYE); SOLUTION FOR INJECTION
     Route: 031
     Dates: start: 20180910, end: 20180910
  8. EYLEA [Suspect]
     Active Substance: AFLIBERCEPT
     Dosage: 2.0 MG (LEFT EYE); SOLUTION FOR INJECTION
     Route: 031
     Dates: start: 20181017, end: 20181017
  9. EYLEA [Suspect]
     Active Substance: AFLIBERCEPT
     Dosage: 2.0 MG (LEFT EYE); SOLUTION FOR INJECTION
     Route: 031
     Dates: start: 20181114, end: 20181114
  10. EYLEA [Suspect]
     Active Substance: AFLIBERCEPT
     Dosage: 2.0 MG (LEFT EYE); SOLUTION FOR INJECTION
     Route: 031
     Dates: start: 20181212, end: 20181212
  11. EYLEA [Suspect]
     Active Substance: AFLIBERCEPT
     Dosage: 2.0 MG (LEFT EYE); SOLUTION FOR INJECTION
     Route: 031
     Dates: start: 20190108, end: 20190108
  12. EYLEA [Suspect]
     Active Substance: AFLIBERCEPT
     Dosage: 2.0 MG (LEFT EYE); SOLUTION FOR INJECTION
     Route: 031
     Dates: start: 20190206, end: 20190206
  13. EYLEA [Suspect]
     Active Substance: AFLIBERCEPT
     Dosage: 2.0 MG (LEFT EYE); SOLUTION FOR INJECTION
     Route: 031
     Dates: start: 20190306, end: 20190306
  14. EYLEA [Suspect]
     Active Substance: AFLIBERCEPT
     Dosage: 2.0 MG (LEFT EYE); SOLUTION FOR INJECTION
     Route: 031
     Dates: start: 20190403, end: 20190403
  15. EYLEA [Suspect]
     Active Substance: AFLIBERCEPT
     Dosage: 2.0 MG (LEFT EYE); SOLUTION FOR INJECTION
     Route: 031
     Dates: start: 20190501, end: 20190501
  16. EYLEA [Suspect]
     Active Substance: AFLIBERCEPT
     Dosage: 2.0 MG (LEFT EYE); SOLUTION FOR INJECTION
     Route: 031
     Dates: start: 20190529, end: 20190529
  17. EYLEA [Suspect]
     Active Substance: AFLIBERCEPT
     Dosage: 2.0 MG (LEFT EYE); SOLUTION FOR INJECTION
     Route: 031
     Dates: start: 20190626, end: 20190626
  18. EYLEA [Suspect]
     Active Substance: AFLIBERCEPT
     Dosage: 2.0 MG (LEFT EYE); SOLUTION FOR INJECTION
     Route: 031
     Dates: start: 20190724, end: 20190724
  19. EYLEA [Suspect]
     Active Substance: AFLIBERCEPT
     Dosage: 2.0 MG (LEFT EYE); SOLUTION FOR INJECTION
     Route: 031
     Dates: start: 20190829, end: 20190829
  20. EYLEA [Suspect]
     Active Substance: AFLIBERCEPT
     Dosage: 2.0 MG (LEFT EYE); SOLUTION FOR INJECTION
     Route: 031
     Dates: start: 20190926, end: 20190926
  21. EYLEA [Suspect]
     Active Substance: AFLIBERCEPT
     Dosage: 2.0 MG (LEFT EYE); SOLUTION FOR INJECTION
     Route: 031
     Dates: start: 20191024, end: 20191024
  22. EYLEA [Suspect]
     Active Substance: AFLIBERCEPT
     Dosage: 2.0 MG (LEFT EYE); SOLUTION FOR INJECTION
     Route: 031
     Dates: start: 20191125, end: 20191125
  23. EYLEA [Suspect]
     Active Substance: AFLIBERCEPT
     Dosage: 2.0 MG (LEFT EYE); SOLUTION FOR INJECTION
     Route: 031
     Dates: start: 20191223, end: 20191223
  24. EYLEA [Suspect]
     Active Substance: AFLIBERCEPT
     Dosage: 2.0 MG (LEFT EYE); SOLUTION FOR INJECTION
     Route: 031
     Dates: start: 20200120, end: 20200120
  25. EYLEA [Suspect]
     Active Substance: AFLIBERCEPT
     Dosage: 2.0 MG (LEFT EYE); SOLUTION FOR INJECTION
     Route: 031
     Dates: start: 20200218, end: 20200218
  26. EYLEA [Suspect]
     Active Substance: AFLIBERCEPT
     Dosage: 2.0 MG (LEFT EYE); SOLUTION FOR INJECTION
     Route: 031
     Dates: start: 20200317, end: 20200317
  27. EYLEA [Suspect]
     Active Substance: AFLIBERCEPT
     Dosage: 2.0 MG (LEFT EYE); SOLUTION FOR INJECTION
     Route: 031
     Dates: start: 20200414, end: 20200414
  28. EYLEA [Suspect]
     Active Substance: AFLIBERCEPT
     Dosage: 2.0 MG (LEFT EYE); SOLUTION FOR INJECTION
     Route: 031
     Dates: start: 20200512, end: 20200512
  29. EYLEA [Suspect]
     Active Substance: AFLIBERCEPT
     Dosage: 2.0 MG (LEFT EYE); SOLUTION FOR INJECTION
     Route: 031
     Dates: start: 20200609, end: 20200609
  30. EYLEA [Suspect]
     Active Substance: AFLIBERCEPT
     Dosage: 2.0 MG (LEFT EYE); SOLUTION FOR INJECTION
     Route: 031
     Dates: start: 20200707, end: 20200707
  31. EYLEA [Suspect]
     Active Substance: AFLIBERCEPT
     Dosage: 2.0 MG (LEFT EYE); SOLUTION FOR INJECTION
     Route: 031
     Dates: start: 20200805, end: 20200805
  32. EYLEA [Suspect]
     Active Substance: AFLIBERCEPT
     Dosage: 2.0 MG (LEFT EYE); SOLUTION FOR INJECTION
     Route: 031
     Dates: start: 20200901, end: 20200901
  33. EYLEA [Suspect]
     Active Substance: AFLIBERCEPT
     Dosage: 2.0 MG (LEFT EYE); SOLUTION FOR INJECTION
     Route: 031
     Dates: start: 20200929, end: 20200929
  34. EYLEA [Suspect]
     Active Substance: AFLIBERCEPT
     Dosage: 2.0 MG (LEFT EYE); SOLUTION FOR INJECTION
     Route: 031
     Dates: start: 20201027, end: 20201027
  35. EYLEA [Suspect]
     Active Substance: AFLIBERCEPT
     Dosage: 2.0 MG (LEFT EYE); SOLUTION FOR INJECTION
     Route: 031
     Dates: start: 20201124, end: 20201124
  36. EYLEA [Suspect]
     Active Substance: AFLIBERCEPT
     Dosage: 2.0 MG (LEFT EYE); SOLUTION FOR INJECTION
     Route: 031
     Dates: start: 20201222, end: 20201222
  37. EYLEA [Suspect]
     Active Substance: AFLIBERCEPT
     Dosage: 2.0 MG (LEFT EYE); SOLUTION FOR INJECTION
     Route: 031
     Dates: start: 20210119, end: 20210119
  38. EYLEA [Suspect]
     Active Substance: AFLIBERCEPT
     Dosage: 2.0 MG (LEFT EYE); SOLUTION FOR INJECTION
     Route: 031
     Dates: start: 20210219, end: 20210219
  39. EYLEA [Suspect]
     Active Substance: AFLIBERCEPT
     Dosage: 2.0 MG (LEFT EYE); SOLUTION FOR INJECTION
     Route: 031
     Dates: start: 20210319, end: 20210319
  40. EYLEA [Suspect]
     Active Substance: AFLIBERCEPT
     Dosage: 2.0 MG (LEFT EYE); SOLUTION FOR INJECTION
     Route: 031
     Dates: start: 20210415, end: 20210415
  41. EYLEA [Suspect]
     Active Substance: AFLIBERCEPT
     Dosage: 2.0 MG (LEFT EYE); SOLUTION FOR INJECTION
     Route: 031
     Dates: start: 20210514, end: 20210514
  42. EYLEA [Suspect]
     Active Substance: AFLIBERCEPT
     Dosage: 2.0 MG (LEFT EYE); SOLUTION FOR INJECTION
     Route: 031
     Dates: start: 20210616, end: 20210616
  43. EYLEA [Suspect]
     Active Substance: AFLIBERCEPT
     Dosage: 2.0 MG (LEFT EYE); SOLUTION FOR INJECTION
     Route: 031
     Dates: start: 20210614, end: 20210614
  44. EYLEA [Suspect]
     Active Substance: AFLIBERCEPT
     Dosage: 2.0 MG (LEFT EYE); SOLUTION FOR INJECTION
     Route: 031
     Dates: start: 20210712, end: 20210712
  45. EYLEA [Suspect]
     Active Substance: AFLIBERCEPT
     Dosage: 2.0 MG (LEFT EYE); SOLUTION FOR INJECTION
     Route: 031
     Dates: start: 20210810, end: 20210810
  46. EYLEA [Suspect]
     Active Substance: AFLIBERCEPT
     Dosage: 2.0 MG (LEFT EYE); SOLUTION FOR INJECTION
     Route: 031
     Dates: start: 20210907, end: 20210907
  47. EYLEA [Suspect]
     Active Substance: AFLIBERCEPT
     Dosage: 2.0 MG (LEFT EYE); SOLUTION FOR INJECTION
     Route: 031
     Dates: start: 20211005, end: 20211005
  48. EYLEA [Suspect]
     Active Substance: AFLIBERCEPT
     Dosage: 2.0 MG (LEFT EYE); SOLUTION FOR INJECTION
     Route: 031
     Dates: start: 20211102, end: 20211102
  49. EYLEA [Suspect]
     Active Substance: AFLIBERCEPT
     Dosage: 2.0 MG (LEFT EYE); SOLUTION FOR INJECTION
     Route: 031
     Dates: start: 20211130, end: 20211130
  50. EYLEA [Suspect]
     Active Substance: AFLIBERCEPT
     Dosage: 2.0 MG (LEFT EYE); SOLUTION FOR INJECTION
     Route: 031
     Dates: start: 20211222, end: 20211222

REACTIONS (5)
  - Blindness [Recovering/Resolving]
  - Photophobia [Recovering/Resolving]
  - Eye pain [Recovering/Resolving]
  - Ocular hyperaemia [Recovering/Resolving]
  - Lacrimation increased [Recovering/Resolving]

NARRATIVE: CASE EVENT DATE: 20220930
